FAERS Safety Report 9030488 (Version 1)
Quarter: 2013Q1

REPORT INFORMATION
  Report Type: Spontaneous
  Country: IT (occurrence: IT)
  Receive Date: 20130122
  Receipt Date: 20130122
  Transmission Date: 20140127
  Serious: Yes (Other)
  Sender: FDA-Public Use
  Company Number: IT-UCBSA-076010

PATIENT
  Age: 85 Year
  Sex: Female

DRUGS (6)
  1. NITROGLYCERIN [Suspect]
     Indication: ISCHAEMIC CARDIOMYOPATHY
     Route: 062
     Dates: start: 20070101, end: 20121220
  2. ENAPREN [Suspect]
     Indication: HYPERTENSION
     Route: 048
     Dates: start: 20070101, end: 20121220
  3. LASITONE [Suspect]
     Indication: HYPERTENSION
     Dosage: 25 MG + 37 MG
     Route: 048
     Dates: start: 20070101, end: 20121220
  4. LANOXIN [Concomitant]
     Indication: ATRIAL FIBRILLATION
     Dosage: 0.125 MG
  5. LEVOTHYROXINE SODIUM [Concomitant]
     Indication: HYPOTHYROIDISM
     Dosage: UNKNOWN
  6. ACENOCUMAROL [Concomitant]
     Dosage: UNKNOWN

REACTIONS (2)
  - Hypotension [Recovering/Resolving]
  - Presyncope [Recovering/Resolving]
